FAERS Safety Report 9498799 (Version 2)
Quarter: 2013Q4

REPORT INFORMATION
  Report Type: Spontaneous
  Country: US (occurrence: US)
  Receive Date: 20130904
  Receipt Date: 20131001
  Transmission Date: 20140711
  Serious: Yes (Death, Hospitalization)
  Sender: FDA-Public Use
  Company Number: US-CELGENEUS-163-POMAL-13084209

PATIENT
  Age: 81 Year
  Sex: Male

DRUGS (2)
  1. POMALYST [Suspect]
     Indication: PLASMA CELL MYELOMA
     Dosage: 4 MILLIGRAM
     Route: 048
     Dates: start: 20130525, end: 20130730
  2. POMALYST [Suspect]
     Dosage: 3 MILLICURIES
     Route: 048
     Dates: start: 20130731, end: 20130815

REACTIONS (1)
  - Plasma cell myeloma [Fatal]
